FAERS Safety Report 8268864-1 (Version None)
Quarter: 2012Q1

REPORT INFORMATION
  Report Type: 
  Country: None (occurrence: None)
  Receive Date: 20120327
  Receipt Date: 20080813
  Transmission Date: 20120608
  Serious: Yes (Other)
  Sender: FDA-Public Use
  Company Number: PHHY2008US34248

PATIENT
  Age: 61 Year
  Sex: Female

DRUGS (3)
  1. SIMVASTATIN [Concomitant]
  2. PAXIL [Concomitant]
  3. GLEEVEC [Suspect]
     Dosage: 400 MG DAILY, ORAL
     Route: 048
     Dates: start: 20080723

REACTIONS (6)
  - RHABDOMYOLYSIS [None]
  - INFLUENZA LIKE ILLNESS [None]
  - CHILLS [None]
  - PAIN [None]
  - DRUG INTERACTION [None]
  - PYREXIA [None]
